FAERS Safety Report 10229650 (Version 1)
Quarter: 2014Q2

REPORT INFORMATION
  Report Type: Spontaneous
  Country: DE (occurrence: DE)
  Receive Date: 20140611
  Receipt Date: 20140611
  Transmission Date: 20141212
  Serious: Yes (Hospitalization)
  Sender: FDA-Public Use
  Company Number: DE-JNJFOC-20140518633

PATIENT
  Age: 67 Year
  Sex: Female
  Weight: 128 kg

DRUGS (3)
  1. DOXORUBICIN HYDROCHLORIDE [Suspect]
     Indication: OVARIAN CANCER
     Route: 042
  2. YONDELIS [Suspect]
     Indication: OVARIAN CANCER
     Dosage: CYCLE 1
     Route: 042
     Dates: start: 20140304, end: 20140304
  3. DEXAMETHASONE [Concomitant]
     Indication: PREMEDICATION
     Route: 065

REACTIONS (10)
  - Gamma-glutamyltransferase increased [Not Recovered/Not Resolved]
  - Infection [Recovered/Resolved]
  - Febrile neutropenia [Recovered/Resolved]
  - Neutropenia [Recovered/Resolved]
  - General physical health deterioration [Recovered/Resolved]
  - Platelet count decreased [Recovered/Resolved]
  - White blood cell count decreased [Recovered/Resolved]
  - Aspartate aminotransferase increased [Not Recovered/Not Resolved]
  - Alanine aminotransferase increased [Recovered/Resolved]
  - Blood alkaline phosphatase increased [Recovered/Resolved]
